FAERS Safety Report 8081527-0 (Version None)
Quarter: 2012Q1

REPORT INFORMATION
  Report Type: 
  Country: None (occurrence: None)
  Receive Date: 20120130
  Receipt Date: 20120125
  Transmission Date: 20120608
  Serious: Yes (Hospitalization)
  Sender: FDA-Public Use
  Company Number: FR-PFIZER INC-2011118059

PATIENT
  Age: 64 Year
  Sex: Female

DRUGS (8)
  1. TARGOCID [Suspect]
     Indication: LUNG ABSCESS
     Dosage: 400 MG, 2X/DAY
     Route: 042
     Dates: start: 20110304, end: 20110305
  2. MYCOPHENOLATE MOFETIL (CELLCEPT) [Concomitant]
     Dosage: 500 MG, 2X/DAY
     Dates: start: 20000101
  3. CIPROFLOXACIN [Suspect]
     Indication: LUNG ABSCESS
     Dosage: 500 MG, 2X/DAY
     Route: 048
     Dates: start: 20110330, end: 20110403
  4. PIPERACILLIN/TAZOBACTAM [Suspect]
     Indication: LUNG ABSCESS
     Dosage: 4 G, 3X/DAY
     Route: 042
     Dates: start: 20110304, end: 20110406
  5. ROCEPHIN [Concomitant]
     Dosage: 1 G DAILY
     Route: 042
  6. OFLOXACIN [Concomitant]
     Dosage: 200 MG, 2X/DAY
  7. FLAGYL [Concomitant]
     Dosage: 500 MG, 3X/DAY
     Route: 048
  8. TARGOCID [Suspect]
     Dosage: 400 MG DAILY
     Route: 042
     Dates: start: 20110406, end: 20110407

REACTIONS (2)
  - DRUG RASH WITH EOSINOPHILIA AND SYSTEMIC SYMPTOMS [None]
  - SKIN TEST POSITIVE [None]
